FAERS Safety Report 10524298 (Version 1)
Quarter: 2014Q4

REPORT INFORMATION
  Report Type: Spontaneous
  Country: US (occurrence: None)
  Receive Date: 20141015
  Receipt Date: 20141015
  Transmission Date: 20150528
  Serious: Yes (Other)
  Sender: FDA-Public Use
  Company Number: 001813579A

PATIENT
  Age: 76 Year
  Sex: Female

DRUGS (3)
  1. MEANINGFUL BEAUTY CINDY CRAWFORD ANTIOXIDANT SPF 20 UVA/UVB [Suspect]
     Active Substance: AVOBENZONE\OCTINOXATE\OCTISALATE\OXYBENZONE
     Dosage: ONCE DAILY DERMAL
     Dates: start: 20140908, end: 20140916
  2. VITAMIN D [Concomitant]
     Active Substance: CHOLECALCIFEROL
  3. MEANINGFUL BEAUTY CINDY CRAWFORD SKIN BRIGHTENING DECOLLETE AND NECK TREATMENT SPF 15 [Suspect]
     Active Substance: AVOBENZONE\OCTINOXATE\OCTISALATE\OXYBENZONE
     Dosage: ONCE DAILY DERMAL
     Dates: start: 20140908, end: 20140916

REACTIONS (4)
  - Eye swelling [None]
  - Rash [None]
  - Erythema [None]
  - Pruritus [None]

NARRATIVE: CASE EVENT DATE: 20140910
